FAERS Safety Report 10466551 (Version 1)
Quarter: 2014Q3

REPORT INFORMATION
  Report Type: Report from Study
  Country: CA (occurrence: CA)
  Receive Date: 20140922
  Receipt Date: 20140922
  Transmission Date: 20150326
  Serious: Yes (Hospitalization)
  Sender: FDA-Public Use
  Company Number: CA-ROCHE-1464535

PATIENT
  Age: 38 Year
  Sex: Male

DRUGS (14)
  1. ALLOPURINOL. [Concomitant]
     Active Substance: ALLOPURINOL
     Route: 065
  2. ADALAT CC [Concomitant]
     Active Substance: NIFEDIPINE
     Route: 065
  3. CITALOPRAM [Concomitant]
     Active Substance: CITALOPRAM HYDROBROMIDE
     Route: 065
  4. COVERSYL [Concomitant]
     Active Substance: PERINDOPRIL
     Route: 065
  5. ACTEMRA [Suspect]
     Active Substance: TOCILIZUMAB
     Indication: RHEUMATOID ARTHRITIS
     Route: 042
     Dates: start: 20140825
  6. FOLIC ACID. [Concomitant]
     Active Substance: FOLIC ACID
     Route: 065
  7. NEXIUM [Concomitant]
     Active Substance: ESOMEPRAZOLE MAGNESIUM
     Route: 048
  8. ACLASTA [Concomitant]
     Active Substance: ZOLEDRONIC ACID
     Dosage: INFUSION IN JANUARY ONCE A YEAR
     Route: 042
  9. ASA [Concomitant]
     Active Substance: ASPIRIN
     Route: 065
  10. LIPITOR [Concomitant]
     Active Substance: ATORVASTATIN CALCIUM
     Route: 065
  11. METHOTREXATE [Concomitant]
     Active Substance: METHOTREXATE
     Route: 058
  12. PREDNISONE. [Concomitant]
     Active Substance: PREDNISONE
     Dosage: TRYING TO TAPER NEXT WEEK BEEN ON FOR 15 YEARS
     Route: 065
  13. BISOPROLOL [Concomitant]
     Active Substance: BISOPROLOL
     Route: 065
  14. TYLENOL WITH CODEINE [Concomitant]
     Active Substance: ACETAMINOPHEN\CODEINE PHOSPHATE
     Route: 065

REACTIONS (1)
  - Acne [Unknown]

NARRATIVE: CASE EVENT DATE: 20140904
